FAERS Safety Report 19422277 (Version 1)
Quarter: 2021Q2

REPORT INFORMATION
  Report Type: Spontaneous
  Country: GB (occurrence: GB)
  Receive Date: 20210616
  Receipt Date: 20210616
  Transmission Date: 20210717
  Serious: Yes (Hospitalization, Other)
  Sender: FDA-Public Use
  Company Number: GB-MICRO LABS LIMITED-ML2021-01934

PATIENT
  Age: 9 Decade
  Sex: Female

DRUGS (5)
  1. APIXABAN [Suspect]
     Active Substance: APIXABAN
     Indication: ATRIAL FIBRILLATION
  2. DIGOXIN. [Concomitant]
     Active Substance: DIGOXIN
  3. APIXABAN [Suspect]
     Active Substance: APIXABAN
     Indication: PULMONARY EMBOLISM
  4. BISOPROLOL [Concomitant]
     Active Substance: BISOPROLOL
  5. GLYCERYL TRINITRATE [Concomitant]
     Active Substance: NITROGLYCERIN

REACTIONS (2)
  - Neuropsychiatric symptoms [Recovering/Resolving]
  - Condition aggravated [Recovering/Resolving]
